FAERS Safety Report 15688804 (Version 1)
Quarter: 2018Q4

REPORT INFORMATION
  Report Type: Spontaneous
  Country: US (occurrence: US)
  Receive Date: 20181121
  Receipt Date: 20181121
  Transmission Date: 20190205
  Serious: No
  Sender: FDA-Public Use
  Company Number: None

PATIENT
  Age: 78 Year
  Sex: Female
  Weight: 58.06 kg

DRUGS (6)
  1. LOW DOSE ASPIRIN [Concomitant]
     Active Substance: ASPIRIN
  2. TRAVATAN 2 [Concomitant]
  3. ROSUVASTATIN CALCIUM. [Concomitant]
     Active Substance: ROSUVASTATIN CALCIUM
  4. PRESERVISION [Concomitant]
     Active Substance: MINERALS\VITAMINS
  5. TIMOLOL  MALEATE OPHTHALMIC SOLUTION 0.5% [Suspect]
     Active Substance: TIMOLOL MALEATE
     Indication: GLAUCOMA
     Dosage: ?          QUANTITY:1 GTT DROP(S);?
     Route: 047
     Dates: start: 2009, end: 20181026
  6. CALM (MAGNESIUM SUPPLEMENT) [Concomitant]

REACTIONS (3)
  - Vertigo [None]
  - Dizziness [None]
  - Rhinorrhoea [None]

NARRATIVE: CASE EVENT DATE: 20160307
